FAERS Safety Report 6124487-1 (Version None)
Quarter: 2009Q1

REPORT INFORMATION
  Report Type: 
  Country: None (occurrence: None)
  Receive Date: 20090319
  Receipt Date: 20090311
  Transmission Date: 20090719
  Serious: Yes (Hospitalization, Other)
  Sender: FDA-Public Use
  Company Number: PHHY2009FR09058

PATIENT
  Age: 76 Year
  Sex: Male

DRUGS (4)
  1. ZOMETA [Suspect]
     Dosage: 4 MG, QMO
     Dates: start: 20030101, end: 20050201
  2. CORTANCYL [Concomitant]
     Dosage: 20 MG/DAY
     Dates: start: 20010101
  3. PERMIXON [Concomitant]
     Dosage: 160 MG, BID
  4. ESOMEPRAZOLE [Concomitant]
     Dosage: 40 MG/DAY
     Dates: start: 20010101

REACTIONS (9)
  - BONE DISORDER [None]
  - BONE LESION [None]
  - BONE LESION EXCISION [None]
  - DEBRIDEMENT [None]
  - GENERAL PHYSICAL HEALTH DETERIORATION [None]
  - INFECTION [None]
  - METASTASES TO BONE [None]
  - ORAL CAVITY FISTULA [None]
  - OSTEONECROSIS [None]
